FAERS Safety Report 10305114 (Version 1)
Quarter: 2014Q3

REPORT INFORMATION
  Report Type: Spontaneous
  Country: FR (occurrence: FR)
  Receive Date: 20140715
  Receipt Date: 20140715
  Transmission Date: 20150326
  Serious: Yes (Hospitalization)
  Sender: FDA-Public Use
  Company Number: FR-ASTRAZENECA-2014SE49616

PATIENT
  Age: 10299 Day
  Sex: Male

DRUGS (8)
  1. CLAMOXYL [Suspect]
     Active Substance: AMOXICILLIN\CLAVULANIC ACID
     Indication: LUNG DISORDER
     Route: 048
     Dates: start: 20140529, end: 20140606
  2. VALIUM [Concomitant]
     Active Substance: DIAZEPAM
  3. NOCTAMIDE [Suspect]
     Active Substance: LORMETAZEPAM
     Dosage: LONG LASTING TREATMENT, 2MG EVERY DAY
     Route: 048
     Dates: end: 20140611
  4. SPECIAFOLDINE [Concomitant]
     Active Substance: FOLIC ACID
  5. MACROGOL [Concomitant]
     Active Substance: POLYETHYLENE GLYCOLS
  6. XEROQUEL [Suspect]
     Active Substance: QUETIAPINE FUMARATE
     Indication: BIPOLAR DISORDER
     Route: 048
     Dates: start: 20140512, end: 20140611
  7. TERCIAN [Suspect]
     Active Substance: CYAMEMAZINE
     Route: 048
     Dates: start: 20140523, end: 20140611
  8. PARACETAMOL [Concomitant]
     Active Substance: ACETAMINOPHEN

REACTIONS (5)
  - Asthenia [Unknown]
  - Sickle cell anaemia with crisis [Unknown]
  - Lung disorder [Unknown]
  - Neutropenia [Recovered/Resolved]
  - Epilepsy [Unknown]

NARRATIVE: CASE EVENT DATE: 20140611
